FAERS Safety Report 4334326-7 (Version None)
Quarter: 2004Q2

REPORT INFORMATION
  Report Type: 
  Country: None (occurrence: None)
  Receive Date: 20040405
  Receipt Date: 20040323
  Transmission Date: 20050107
  Serious: Yes (Disabling)
  Sender: FDA-Public Use
  Company Number: HQWYE286024FEB04

PATIENT
  Age: 79 Year
  Sex: Female

DRUGS (4)
  1. CORDARONE [Suspect]
     Indication: ATRIAL FIBRILLATION
     Dosage: 200 MG5X PER 1 WK; ORAL
     Route: 048
  2. GLUCOPHAGE [Concomitant]
  3. COVERSYL (PERINDOPRIL) [Concomitant]
  4. MEDROL [Concomitant]

REACTIONS (8)
  - BALANCE DISORDER [None]
  - CEREBROVASCULAR ACCIDENT [None]
  - CONCUSSION [None]
  - DIZZINESS [None]
  - ELECTROMYOGRAM ABNORMAL [None]
  - FALL [None]
  - HYPOAESTHESIA [None]
  - NERVOUS SYSTEM DISORDER [None]
